FAERS Safety Report 5145288-7 (Version None)
Quarter: 2006Q4

REPORT INFORMATION
  Report Type: 
  Country: None (occurrence: None)
  Receive Date: 20061101
  Receipt Date: 20061018
  Transmission Date: 20070319
  Serious: Yes (Death, Other)
  Sender: FDA-Public Use
  Company Number: 2006JP003593

PATIENT
  Age: 42 Year
  Sex: Male
  Weight: 75 kg

DRUGS (19)
  1. PROGRAF [Suspect]
     Indication: BONE MARROW TRANSPLANT
     Dosage: 1 MG, UID/QD, IV NOS
     Route: 042
     Dates: start: 20060221, end: 20060225
  2. METHOTREXATE [Concomitant]
  3. VORICANAZOLE (VORICANAZOLE) [Concomitant]
  4. VFEND [Concomitant]
  5. MAXIPIME [Concomitant]
  6. CYCLOPHOSPHAMIDE [Concomitant]
  7. FLUDARA [Concomitant]
  8. ZETBULIN INJECTION [Concomitant]
  9. KYTRIL [Concomitant]
  10. LASIX [Concomitant]
  11. SOL-MELCORT (METHYLPREDNISOLONE SODIUM SUCCINATE) [Concomitant]
  12. VFEND [Concomitant]
  13. BACTAR (SULFAMETHOXAZOLE) [Concomitant]
  14. CIPROXAN (CIPROFLOXACIN HYDROCHLORIDE) [Concomitant]
  15. MUCOSTA (REBAMIPIDE) [Concomitant]
  16. ENTERONON R (STREPTOCOCCUS FAECALIS, LACTOBACILLUS ACIDOPHILUS, STREPT [Concomitant]
  17. ACYCLOVIR [Concomitant]
  18. LANSOPRAZOLE [Concomitant]
  19. GLYCYRON (AMINOACETIC ACID, GLYCYRRHIZIC ACID, DL-METHIONINE) [Concomitant]

REACTIONS (4)
  - ENCEPHALOPATHY [None]
  - TRICHOSPORON INFECTION [None]
  - VISION BLURRED [None]
  - VISUAL ACUITY REDUCED [None]
